FAERS Safety Report 6824131-1 (Version None)
Quarter: 2010Q3

REPORT INFORMATION
  Report Type: 
  Country: None (occurrence: None)
  Receive Date: 20100708
  Receipt Date: 20061003
  Transmission Date: 20110219
  Serious: No
  Sender: FDA-Public Use
  Company Number: US-PFIZER INC-2006121064

PATIENT
  Age: 85 Year
  Sex: Female
  Weight: 61.23 kg

DRUGS (10)
  1. CHANTIX [Suspect]
     Indication: EX-TOBACCO USER
     Dates: start: 20061002
  2. LORAZEPAM [Concomitant]
  3. XANAX [Concomitant]
  4. PLAVIX [Concomitant]
  5. SPIRONOLACTONE [Concomitant]
  6. PREDNISONE [Concomitant]
  7. MONTELUKAST [Concomitant]
  8. SPIRIVA [Concomitant]
  9. ADVAIR DISKUS 100/50 [Concomitant]
  10. DURATUSS [Concomitant]
     Indication: COUGH

REACTIONS (1)
  - SOMNOLENCE [None]
